FAERS Safety Report 21280447 (Version 11)
Quarter: 2023Q1

REPORT INFORMATION
  Report Type: Spontaneous
  Country: US (occurrence: US)
  Receive Date: 20220901
  Receipt Date: 20230130
  Transmission Date: 20230418
  Serious: No
  Sender: FDA-Public Use
  Company Number: US-PFIZER INC-PV202200055122

PATIENT
  Age: 59 Year
  Sex: Female

DRUGS (3)
  1. IBRANCE [Suspect]
     Active Substance: PALBOCICLIB
     Dosage: 100 MG
  2. IBRANCE [Suspect]
     Active Substance: PALBOCICLIB
     Dosage: 100 MG
  3. VERZENIO [Suspect]
     Active Substance: ABEMACICLIB
     Dosage: UNK

REACTIONS (19)
  - Dizziness [Not Recovered/Not Resolved]
  - Lethargy [Unknown]
  - Fatigue [Unknown]
  - Decreased appetite [Unknown]
  - Headache [Not Recovered/Not Resolved]
  - Diarrhoea [Not Recovered/Not Resolved]
  - Oropharyngeal pain [Not Recovered/Not Resolved]
  - Cough [Unknown]
  - Chest pain [Unknown]
  - Productive cough [Unknown]
  - Nasopharyngitis [Unknown]
  - Abdominal discomfort [Unknown]
  - White blood cell count decreased [Unknown]
  - Pain [Not Recovered/Not Resolved]
  - Arthralgia [Not Recovered/Not Resolved]
  - Pain in extremity [Not Recovered/Not Resolved]
  - Neck pain [Unknown]
  - Feeling abnormal [Unknown]
  - Product dose omission issue [Unknown]
